FAERS Safety Report 6813903-5 (Version None)
Quarter: 2010Q3

REPORT INFORMATION
  Report Type: 
  Country: None (occurrence: None)
  Receive Date: 20100702
  Receipt Date: 20100624
  Transmission Date: 20110219
  Serious: No
  Sender: FDA-Public Use
  Company Number: JP-MERCK-1005USA01679

PATIENT
  Age: 59 Year
  Sex: Female
  Weight: 62 kg

DRUGS (8)
  1. JANUVIA [Suspect]
     Indication: TYPE 2 DIABETES MELLITUS
     Route: 048
     Dates: start: 20100224, end: 20100329
  2. RISPERDAL [Concomitant]
     Route: 048
     Dates: start: 20060519
  3. PEROSPIRONE [Concomitant]
     Route: 048
  4. TASMOLIN TABLETS [Concomitant]
     Route: 048
  5. LEVOTOMIN (LEVOMEPROMAZINE MALEATE) [Concomitant]
     Route: 048
  6. HALCION [Concomitant]
     Route: 048
  7. DEPAS [Concomitant]
     Route: 048
  8. ZOPICOOL [Concomitant]
     Route: 048

REACTIONS (4)
  - DECREASED APPETITE [None]
  - NAUSEA [None]
  - VOMITING [None]
  - WEIGHT DECREASED [None]
